FAERS Safety Report 23048954 (Version 1)
Quarter: 2023Q4

REPORT INFORMATION
  Report Type: Spontaneous
  Country: NL (occurrence: NL)
  Receive Date: 20231010
  Receipt Date: 20231010
  Transmission Date: 20240110
  Serious: Yes (Hospitalization)
  Sender: FDA-Public Use
  Company Number: None

PATIENT
  Age: 75 Year
  Sex: Male
  Weight: 75.4 kg

DRUGS (1)
  1. METHOTREXATE [Suspect]
     Active Substance: METHOTREXATE
     Indication: Rheumatoid arthritis
     Dosage: 6 PIECES ONCE A WEEK, METHOTREXATE TABLET  2,5MG / BRAND NAME NOT SPECIFIED
     Dates: start: 20230511, end: 20230529

REACTIONS (1)
  - Thrombocytopenia [Recovered/Resolved]
